FAERS Safety Report 21037190 (Version 1)
Quarter: 2022Q3

REPORT INFORMATION
  Report Type: Spontaneous
  Country: US (occurrence: US)
  Receive Date: 20220703
  Receipt Date: 20220703
  Transmission Date: 20221027
  Serious: No
  Sender: FDA-Public Use
  Company Number: US-BRISTOL-MYERS SQUIBB COMPANY-2022-061728

PATIENT
  Age: 63 Year
  Sex: Female
  Weight: 76.65 kg

DRUGS (1)
  1. REVLIMID [Suspect]
     Active Substance: LENALIDOMIDE
     Indication: Plasma cell myeloma
     Dosage: DAILY?1ST SHIP DATE-8-NOV-2019.
     Route: 048

REACTIONS (1)
  - Paraesthesia [Unknown]
